FAERS Safety Report 5144627-0 (Version None)
Quarter: 2006Q4

REPORT INFORMATION
  Report Type: 
  Country: None (occurrence: None)
  Receive Date: 20061031
  Receipt Date: 20061016
  Transmission Date: 20070319
  Serious: Yes (Life-Threatening, Hospitalization)
  Sender: FDA-Public Use
  Company Number: S06-GER-03390-01

PATIENT
  Age: 85 Year
  Sex: Female
  Weight: 76 kg

DRUGS (6)
  1. CITALOPRAM HYDROBROMIDE [Suspect]
     Indication: DEPRESSION
     Dosage: 20 MG QD PO
     Route: 048
     Dates: start: 20060601, end: 20060810
  2. TOREM (TORASEMIDE) [Concomitant]
  3. MOVICOL [Concomitant]
  4. RAMIPRIL [Concomitant]
  5. FERRO DUODENAL SANOL (FERROGLYCINE SULFATE COMPLEX) [Concomitant]
  6. CIPROHEXAL [Concomitant]

REACTIONS (23)
  - ASPARTATE AMINOTRANSFERASE INCREASED [None]
  - BLOOD ALKALINE PHOSPHATASE INCREASED [None]
  - BLOOD GLUCOSE INCREASED [None]
  - BLOOD LACTATE DEHYDROGENASE INCREASED [None]
  - BLOOD PRESSURE SYSTOLIC INCREASED [None]
  - CARDIAC FAILURE [None]
  - DISORIENTATION [None]
  - GAMMA-GLUTAMYLTRANSFERASE INCREASED [None]
  - GLOMERULAR FILTRATION RATE DECREASED [None]
  - HAEMOGLOBIN DECREASED [None]
  - JOINT SWELLING [None]
  - MEAN CELL HAEMOGLOBIN DECREASED [None]
  - MONOCYTE COUNT INCREASED [None]
  - OEDEMA PERIPHERAL [None]
  - PROCEDURAL PAIN [None]
  - PROTEIN TOTAL DECREASED [None]
  - PROTHROMBIN TIME PROLONGED [None]
  - RED BLOOD CELL COUNT DECREASED [None]
  - REFUSAL OF TREATMENT BY PATIENT [None]
  - SYNCOPE [None]
  - TORSADE DE POINTES [None]
  - VENTRICULAR FIBRILLATION [None]
  - VENTRICULAR HYPERTROPHY [None]
